FAERS Safety Report 20867869 (Version 1)
Quarter: 2022Q2

REPORT INFORMATION
  Report Type: Spontaneous
  Country: US (occurrence: US)
  Receive Date: 20220524
  Receipt Date: 20220524
  Transmission Date: 20220721
  Serious: No
  Sender: FDA-Public Use
  Company Number: US-KYOWAKIRIN-2022BKK007294

PATIENT

DRUGS (1)
  1. CRYSVITA [Suspect]
     Active Substance: BUROSUMAB-TWZA
     Indication: Hereditary hypophosphataemic rickets
     Dosage: 24.4 MG, 1X/2 WEEKS
     Route: 058
     Dates: start: 20220308

REACTIONS (2)
  - Gait disturbance [Recovering/Resolving]
  - Balance disorder [Recovering/Resolving]
